FAERS Safety Report 20010834 (Version 4)
Quarter: 2024Q1

REPORT INFORMATION
  Report Type: Report from Study
  Country: FR (occurrence: FR)
  Receive Date: 20211028
  Receipt Date: 20240122
  Transmission Date: 20240409
  Serious: Yes (Hospitalization)
  Sender: FDA-Public Use
  Company Number: FR-TAKEDA-FR201820237

PATIENT
  Age: 34 Year
  Sex: Female
  Weight: 58.957 kg

DRUGS (25)
  1. TEDUGLUTIDE [Suspect]
     Active Substance: TEDUGLUTIDE
     Indication: Short-bowel syndrome
     Dosage: 2.8 MILLIGRAM, QD
     Route: 042
     Dates: start: 20160705, end: 20200429
  2. TEDUGLUTIDE [Suspect]
     Active Substance: TEDUGLUTIDE
     Indication: Short-bowel syndrome
     Dosage: 2.8 MILLIGRAM, QD
     Route: 042
     Dates: start: 20160705, end: 20200429
  3. TEDUGLUTIDE [Suspect]
     Active Substance: TEDUGLUTIDE
     Indication: Short-bowel syndrome
     Dosage: 2.8 MILLIGRAM, QD
     Route: 042
     Dates: start: 20160705, end: 20200429
  4. TEDUGLUTIDE [Suspect]
     Active Substance: TEDUGLUTIDE
     Indication: Short-bowel syndrome
     Dosage: 2.8 MILLIGRAM, QD
     Route: 042
     Dates: start: 20160705, end: 20200429
  5. FOSFOMYCIN TROMETHAMINE [Concomitant]
     Active Substance: FOSFOMYCIN TROMETHAMINE
     Indication: Urinary tract infection
  6. PHLOROGLUCINOL [Concomitant]
     Active Substance: PHLOROGLUCINOL
     Indication: Muscle spasms
  7. TRIMEBUTINE MALEATE [Concomitant]
     Active Substance: TRIMEBUTINE MALEATE
     Indication: Abdominal pain upper
  8. IMODIUM [Concomitant]
     Active Substance: LOPERAMIDE HYDROCHLORIDE
     Indication: Prophylaxis
  9. MAGNESIUM [Concomitant]
     Active Substance: MAGNESIUM
     Indication: Polyarthritis
     Dosage: 1 INTERNATIONAL UNIT, BID
     Route: 048
     Dates: start: 20210610
  10. MAGNESIUM [Concomitant]
     Active Substance: MAGNESIUM
     Indication: Hypomagnesaemia
     Dosage: 1 DOSAGE FORM, BID
     Route: 048
     Dates: start: 20210610
  11. MAGNESIUM [Concomitant]
     Active Substance: MAGNESIUM
     Indication: Chondrocalcinosis
  12. Clamoxyl [Concomitant]
     Indication: Influenza like illness
     Dosage: 1 GRAM, TID
     Route: 048
     Dates: start: 20200924, end: 20200930
  13. Clamoxyl [Concomitant]
     Indication: Lung disorder
  14. MAGNESIUM SULFATE [Concomitant]
     Active Substance: MAGNESIUM SULFATE\MAGNESIUM SULFATE HEPTAHYDRATE
     Indication: Polyarthritis
     Dosage: 5 DOSAGE FORM, 2/WEEK
     Route: 042
     Dates: start: 20210722
  15. MAGNESIUM SULFATE [Concomitant]
     Active Substance: MAGNESIUM SULFATE\MAGNESIUM SULFATE HEPTAHYDRATE
     Indication: Chondrocalcinosis
     Dosage: 5 DOSAGE FORM, 1/WEEK
     Route: 042
     Dates: start: 20210610, end: 20210721
  16. MAGNESIUM SULFATE [Concomitant]
     Active Substance: MAGNESIUM SULFATE\MAGNESIUM SULFATE HEPTAHYDRATE
     Indication: Hypomagnesaemia
  17. UNSPECIFIED INGREDIENT [Concomitant]
     Active Substance: UNSPECIFIED INGREDIENT
     Indication: Chondrocalcinosis
     Dosage: 1 DOSAGE FORM, 2/WEEK
     Route: 042
     Dates: start: 20210722
  18. UNSPECIFIED INGREDIENT [Concomitant]
     Active Substance: UNSPECIFIED INGREDIENT
     Indication: Hypomagnesaemia
     Dosage: 1 DOSAGE FORM, 1/WEEK
     Route: 042
     Dates: start: 20210610, end: 20210721
  19. UNSPECIFIED INGREDIENT [Concomitant]
     Active Substance: UNSPECIFIED INGREDIENT
     Indication: Polyarthritis
  20. AMOXICILLIN [Concomitant]
     Active Substance: AMOXICILLIN
     Indication: Pyelonephritis
     Dosage: 1000 MILLIGRAM, BID
     Route: 048
     Dates: start: 20210917, end: 20210927
  21. FLAGYL [Concomitant]
     Active Substance: METRONIDAZOLE\METRONIDAZOLE HYDROCHLORIDE
     Indication: Prophylaxis
     Dosage: 500 MILLIGRAM
     Route: 048
     Dates: start: 202208
  22. FLAGYL [Concomitant]
     Active Substance: METRONIDAZOLE\METRONIDAZOLE HYDROCHLORIDE
     Indication: Gastrointestinal disorder
     Dosage: 500 MILLIGRAM, BID
     Route: 048
     Dates: start: 20220811
  23. FLAGYL [Concomitant]
     Active Substance: METRONIDAZOLE\METRONIDAZOLE HYDROCHLORIDE
     Indication: Enteritis
  24. GENTAMICIN [Concomitant]
     Active Substance: GENTAMICIN
     Indication: Prophylaxis
     Dosage: 40 MILLIGRAM
     Route: 048
     Dates: start: 202208
  25. GENTAMICIN [Concomitant]
     Active Substance: GENTAMICIN
     Indication: Gastrointestinal disorder

REACTIONS (1)
  - Diarrhoea [Recovered/Resolved]

NARRATIVE: CASE EVENT DATE: 20170727
